FAERS Safety Report 7504099-5 (Version None)
Quarter: 2011Q2

REPORT INFORMATION
  Report Type: 
  Country: None (occurrence: None)
  Receive Date: 20110525
  Receipt Date: 20110516
  Transmission Date: 20111010
  Serious: Yes (Hospitalization, Other)
  Sender: FDA-Public Use
  Company Number: US-BAYER-2011-041223

PATIENT
  Age: 33 Year
  Sex: Female
  Weight: 100.23 kg

DRUGS (12)
  1. METOPROLOL SUCCINATE [Concomitant]
     Indication: HYPERTENSION
     Dosage: 25 MG, UNK
     Route: 048
     Dates: start: 20070801, end: 20091001
  2. FLEXERIL [Concomitant]
     Indication: MUSCLE RELAXANT THERAPY
     Dosage: 10 MG, PRN
     Route: 048
     Dates: start: 20090101
  3. ALPRAZOLAM [Concomitant]
     Indication: DEPRESSION
     Dosage: DAILY DOSE .5 MG
     Route: 048
     Dates: start: 20090101, end: 20090101
  4. MELOXICAM [Concomitant]
     Dosage: 7.5 MG, UNK
     Route: 048
     Dates: start: 20090201
  5. YASMIN [Suspect]
     Indication: PRODUCT USED FOR UNKNOWN INDICATION
     Dosage: UNK UNK, QD
     Dates: start: 20040801, end: 20040801
  6. YASMIN [Suspect]
     Dosage: UNK UNK, QD
     Dates: start: 20041201, end: 20051201
  7. DROSPIRENONE AND ETHINYL ESTRADIOL [Suspect]
     Indication: PRODUCT USED FOR UNKNOWN INDICATION
     Dosage: UNK UNK, QD
     Dates: start: 20081101, end: 20091001
  8. AMOXICILLIN [Concomitant]
     Dosage: UNK
     Route: 048
     Dates: start: 20090101
  9. FLUCONAZOLE [Concomitant]
     Dosage: UNK
     Dates: start: 20090101
  10. ALPRAZOLAM [Concomitant]
     Indication: ANXIETY
  11. IBUPROFEN [Concomitant]
     Indication: PAIN
     Dosage: 800 MG, PRN
     Dates: start: 20090201, end: 20090201
  12. ZOLOFT [Concomitant]
     Dosage: 50 MG, UNK
     Route: 048
     Dates: start: 20090101, end: 20090101

REACTIONS (6)
  - INFECTION [None]
  - CHOLELITHIASIS [None]
  - CHOLECYSTITIS [None]
  - INJURY [None]
  - ABDOMINAL PAIN [None]
  - PAIN [None]
